FAERS Safety Report 9001681 (Version 1)
Quarter: 2013Q1

REPORT INFORMATION
  Report Type: Spontaneous
  Country: MX (occurrence: MX)
  Receive Date: 20130107
  Receipt Date: 20130107
  Transmission Date: 20140127
  Serious: Yes (Other)
  Sender: FDA-Public Use
  Company Number: PHHY2012MX121885

PATIENT
  Age: 55 Year
  Sex: Male

DRUGS (2)
  1. IMATINIB [Suspect]
     Dosage: 4 U, UNK
     Dates: start: 201108, end: 201110
  2. IMATINIB [Suspect]
     Dosage: 3 U, UNK
     Dates: start: 201110, end: 201208

REACTIONS (12)
  - Visual acuity reduced [Recovered/Resolved]
  - Haematuria [Recovered/Resolved]
  - Pollakiuria [Recovered/Resolved]
  - Haemorrhoids [Recovered/Resolved]
  - Sleep disorder [Recovered/Resolved]
  - Abdominal pain [Recovered/Resolved]
  - Fatigue [Recovered/Resolved]
  - Rash [Recovered/Resolved]
  - Weight increased [Recovered/Resolved]
  - Muscle spasms [Recovered/Resolved]
  - Hypoaesthesia [Recovered/Resolved]
  - Increased appetite [Recovered/Resolved]
